FAERS Safety Report 9475943 (Version 1)
Quarter: 2013Q3

REPORT INFORMATION
  Report Type: Spontaneous
  Country: US (occurrence: None)
  Receive Date: 20130822
  Receipt Date: 20130822
  Transmission Date: 20140515
  Serious: Yes (Hospitalization)
  Sender: FDA-Public Use
  Company Number: None

PATIENT
  Age: 45 Year
  Sex: Female
  Weight: 57.7 kg

DRUGS (17)
  1. RAPAMUNE [Suspect]
     Indication: RENAL AND PANCREAS TRANSPLANT
     Dates: start: 20110501, end: 20130822
  2. LORAZEPAM [Concomitant]
  3. ACYCLOVIR [Concomitant]
  4. AMITRIPTYLINE [Concomitant]
  5. ASPIRIN [Concomitant]
  6. ATENOLOL [Concomitant]
  7. ATORVASTATIN [Concomitant]
  8. LEVOTHYROXINE [Concomitant]
  9. TACROLIMUS [Concomitant]
  10. AZATHIOPRINE [Concomitant]
  11. CLONIDINE [Concomitant]
  12. CYANOCOBALAMIN [Concomitant]
  13. VIVELLE [Concomitant]
  14. GABAPENTIN [Concomitant]
  15. LANSOPRAZOLE [Concomitant]
  16. PREDNISONE [Concomitant]
  17. TIZANIDINE [Concomitant]

REACTIONS (1)
  - Interstitial lung disease [None]
